FAERS Safety Report 8309389-4 (Version None)
Quarter: 2012Q2

REPORT INFORMATION
  Report Type: 
  Country: None (occurrence: None)
  Receive Date: 20120420
  Receipt Date: 20120407
  Transmission Date: 20120825
  Serious: Yes (Disabling, Other)
  Sender: FDA-Public Use
  Company Number: 2012AP000994

PATIENT
  Age: 20 Year
  Sex: Male

DRUGS (3)
  1. CALCIUM CARBONATE [Suspect]
     Indication: OSTEOPOROSIS
  2. ALENDRONATE SODIUM [Suspect]
     Indication: OSTEOPOROSIS
     Dosage: UNKNOWN
  3. ERGOCALCIFEROL [Suspect]
     Indication: OSTEOPOROSIS

REACTIONS (2)
  - FEMORAL NECK FRACTURE [None]
  - DIARRHOEA [None]
